FAERS Safety Report 19805737 (Version 1)
Quarter: 2021Q3

REPORT INFORMATION
  Report Type: Spontaneous
  Country: GB (occurrence: GB)
  Receive Date: 20210909
  Receipt Date: 20210909
  Transmission Date: 20211014
  Serious: Yes (Disabling, Other)
  Sender: FDA-Public Use
  Company Number: GB-AUROBINDO-AUR-APL-2021-038029

PATIENT
  Age: 81 Year
  Sex: Male
  Weight: 114 kg

DRUGS (8)
  1. AMLODIPINE [Concomitant]
     Active Substance: AMLODIPINE BESYLATE
     Dosage: UNK (1 TABLET ONCE A DAY)
     Route: 065
     Dates: start: 20210701
  2. LOSARTAN. [Concomitant]
     Active Substance: LOSARTAN
     Indication: PRODUCT USED FOR UNKNOWN INDICATION
     Dosage: UNK (1 TABLET ONCE A DAY)
     Route: 065
     Dates: start: 20210831
  3. FUROSEMIDE. [Suspect]
     Active Substance: FUROSEMIDE
     Indication: BUNDLE BRANCH BLOCK RIGHT
     Dosage: UNK
     Route: 048
     Dates: start: 20210719, end: 20210724
  4. AMLODIPINE [Concomitant]
     Active Substance: AMLODIPINE BESYLATE
     Dosage: UNK (1 TABLET ONCE A DAY)
     Route: 065
     Dates: start: 20210601
  5. AMLODIPINE [Concomitant]
     Active Substance: AMLODIPINE BESYLATE
     Dosage: UNK (1 TABLET ONCE A DAY)
     Route: 065
     Dates: start: 20210701, end: 20210727
  6. INDAPAMIDE. [Concomitant]
     Active Substance: INDAPAMIDE
     Indication: PRODUCT USED FOR UNKNOWN INDICATION
     Dosage: UNK (1 TABLET ONCE A DAY)
     Route: 065
     Dates: start: 20210719
  7. INDAPAMIDE. [Concomitant]
     Active Substance: INDAPAMIDE
     Dosage: UNK (1 TABLET ONCE A DAY)
     Route: 065
     Dates: start: 20210813
  8. AMLODIPINE [Concomitant]
     Active Substance: AMLODIPINE BESYLATE
     Indication: PRODUCT USED FOR UNKNOWN INDICATION
     Dosage: UNK (1 TABLET ONCE A DAY)
     Route: 065
     Dates: start: 20210601, end: 20210701

REACTIONS (1)
  - Blister [Recovered/Resolved]

NARRATIVE: CASE EVENT DATE: 20210819
